FAERS Safety Report 6345246-0 (Version None)
Quarter: 2009Q3

REPORT INFORMATION
  Report Type: 
  Country: None (occurrence: None)
  Receive Date: 20090909
  Receipt Date: 20090831
  Transmission Date: 20100115
  Serious: Yes (Other)
  Sender: FDA-Public Use
  Company Number: PHHY2009BR37117

PATIENT
  Age: 40 Year
  Sex: Female

DRUGS (1)
  1. METHERGINE [Suspect]
     Indication: MENORRHAGIA
     Dosage: 0.125 MG, 2 TABS
     Route: 048
     Dates: start: 20090829

REACTIONS (3)
  - DIZZINESS [None]
  - HAEMORRHAGE [None]
  - SENSATION OF FOREIGN BODY [None]
